FAERS Safety Report 18768946 (Version 2)
Quarter: 2021Q1

REPORT INFORMATION
  Report Type: Report from Study
  Country: US (occurrence: US)
  Receive Date: 20210121
  Receipt Date: 20210219
  Transmission Date: 20210419
  Serious: Yes (Death)
  Sender: FDA-Public Use
  Company Number: NVSC2021US012409

PATIENT
  Sex: Female

DRUGS (1)
  1. AFINITOR [Suspect]
     Active Substance: EVEROLIMUS
     Indication: PRODUCT USED FOR UNKNOWN INDICATION
     Dosage: 10 MG (INTERMITTENTLY FOR 1 TO 2 MONTHS)
     Route: 048
     Dates: start: 201905, end: 201907

REACTIONS (3)
  - Asthenia [Unknown]
  - Breast cancer metastatic [Fatal]
  - Fatigue [Unknown]
